FAERS Safety Report 6373857-5 (Version None)
Quarter: 2009Q3

REPORT INFORMATION
  Report Type: 
  Country: None (occurrence: None)
  Receive Date: 20090924
  Receipt Date: 20090529
  Transmission Date: 20100115
  Serious: No
  Sender: FDA-Public Use
  Company Number: US-ASTRAZENECA-2009UW13786

PATIENT
  Sex: Female

DRUGS (9)
  1. SEROQUEL [Suspect]
     Route: 048
  2. SEROQUEL [Suspect]
     Route: 048
  3. SEROQUEL [Suspect]
     Route: 048
  4. OMEPRAZOLE [Concomitant]
  5. FUROSEMIDE [Concomitant]
  6. TYLENOL (CAPLET) [Concomitant]
  7. TUMS [Concomitant]
  8. ADVAIR HFA [Concomitant]
  9. METHYLPREDNISOLONE 4MG TAB [Concomitant]

REACTIONS (1)
  - HAIR COLOUR CHANGES [None]
